FAERS Safety Report 15345877 (Version 1)
Quarter: 2018Q3

REPORT INFORMATION
  Report Type: Spontaneous
  Country: AU (occurrence: AU)
  Receive Date: 20180904
  Receipt Date: 20180904
  Transmission Date: 20181010
  Serious: Yes (Disabling)
  Sender: FDA-Public Use
  Company Number: AU-009507513-1808AUS013116

PATIENT
  Age: 43 Year
  Sex: Female
  Weight: 68 kg

DRUGS (1)
  1. NOVASONE [Suspect]
     Active Substance: MOMETASONE FUROATE
     Dosage: UNK, QW(1:20 APPLICATION WEEKLY)
     Route: 061
     Dates: start: 20160601, end: 20171030

REACTIONS (1)
  - Steroid withdrawal syndrome [Recovering/Resolving]

NARRATIVE: CASE EVENT DATE: 20160901
